FAERS Safety Report 9109126 (Version 3)
Quarter: 2013Q3

REPORT INFORMATION
  Report Type: Spontaneous
  Country: GB (occurrence: GB)
  Receive Date: 20130222
  Receipt Date: 20130909
  Transmission Date: 20140515
  Serious: Yes (Hospitalization)
  Sender: FDA-Public Use
  Company Number: GB-GLAXOSMITHKLINE-B0868062A

PATIENT
  Age: 48 Year
  Sex: Male

DRUGS (20)
  1. AVANDIA [Suspect]
     Indication: PRODUCT USED FOR UNKNOWN INDICATION
     Route: 065
     Dates: start: 2001, end: 2008
  2. IMDUR [Concomitant]
  3. GLICAZIDE [Concomitant]
  4. ASPIRIN [Concomitant]
  5. ENALAPRIL [Concomitant]
  6. ADIZEM XL [Concomitant]
  7. LANSOPRAZOLE [Concomitant]
  8. IMDUR [Concomitant]
  9. METFORMIN [Concomitant]
  10. MIGRALEVE [Concomitant]
  11. RAMIPRIL [Concomitant]
  12. SILDENAFIL [Concomitant]
  13. SIMVASTATIN [Concomitant]
  14. ATORVASTATIN [Concomitant]
  15. BISOPROLOL [Concomitant]
  16. FRUSEMIDE [Concomitant]
  17. ISOSORBIDE MONONITRATE [Concomitant]
  18. XYLOMETAZOLINE [Concomitant]
  19. NICORANDIL [Concomitant]
  20. FERROUS FUMARATE [Concomitant]

REACTIONS (16)
  - Cardiac failure congestive [Unknown]
  - Coronary artery bypass [Unknown]
  - Disability [Unknown]
  - Acute myocardial infarction [Unknown]
  - Acute myocardial infarction [Unknown]
  - Fatigue [Unknown]
  - Local swelling [Unknown]
  - Joint swelling [Unknown]
  - Red blood cell count decreased [Unknown]
  - Blood cholesterol increased [Unknown]
  - Nasopharyngitis [Unknown]
  - Fluid retention [Unknown]
  - Angina pectoris [Unknown]
  - Chest pain [Unknown]
  - General physical health deterioration [Unknown]
  - Dyspnoea [Unknown]
